FAERS Safety Report 8551541-7 (Version None)
Quarter: 2012Q3

REPORT INFORMATION
  Report Type: 
  Country: None (occurrence: None)
  Receive Date: 20120730
  Receipt Date: 20120724
  Transmission Date: 20120928
  Serious: Yes (Hospitalization)
  Sender: FDA-Public Use
  Company Number: CZ-GLAXOSMITHKLINE-Z0015729A

PATIENT
  Sex: Male
  Weight: 79 kg

DRUGS (2)
  1. OFATUMUMAB [Suspect]
     Indication: CHRONIC LYMPHOCYTIC LEUKAEMIA
     Route: 042
     Dates: start: 20120528
  2. BENDAMUSTINE [Suspect]
     Indication: CHRONIC LYMPHOCYTIC LEUKAEMIA
     Dosage: 90MGM2 CYCLIC
     Route: 042
     Dates: start: 20120528

REACTIONS (1)
  - RENAL FAILURE [None]
